FAERS Safety Report 4714314-9 (Version None)
Quarter: 2005Q3

REPORT INFORMATION
  Report Type: 
  Country: None (occurrence: None)
  Receive Date: 20050712
  Receipt Date: 20050629
  Transmission Date: 20060218
  Serious: Yes (Hospitalization, Other)
  Sender: FDA-Public Use
  Company Number: NLWYE792104JUL05

PATIENT
  Age: 68 Year

DRUGS (1)
  1. GEMTUZUMAB OZOGAMICIN (GEMTUZUMAB OZOGAMICIN, INJECTION) [Suspect]

REACTIONS (2)
  - ESCHERICHIA URINARY TRACT INFECTION [None]
  - FEBRILE NEUTROPENIA [None]
